FAERS Safety Report 15394472 (Version 1)
Quarter: 2018Q3

REPORT INFORMATION
  Report Type: Spontaneous
  Country: FR (occurrence: FR)
  Receive Date: 20180918
  Receipt Date: 20180918
  Transmission Date: 20181010
  Serious: Yes (Hospitalization)
  Sender: FDA-Public Use
  Company Number: FR-TEVA-2018-FR-955457

PATIENT
  Age: 35 Year
  Sex: Female
  Weight: 55 kg

DRUGS (2)
  1. LEPTICUR [Suspect]
     Active Substance: TROPATEPINE HYDROCHLORIDE
     Indication: DYSKINESIA
     Dosage: 10 MILLIGRAM DAILY;
     Route: 048
     Dates: end: 20120626
  2. QUETIAPINE. [Suspect]
     Active Substance: QUETIAPINE
     Indication: BIPOLAR DISORDER
     Dosage: 300 MILLIGRAM DAILY;
     Route: 048
     Dates: end: 201206

REACTIONS (3)
  - Chorea [Recovered/Resolved]
  - Drug withdrawal syndrome [Recovered/Resolved]
  - Ballismus [Recovered/Resolved]

NARRATIVE: CASE EVENT DATE: 201206
